FAERS Safety Report 9788297 (Version 2)
Quarter: 2014Q1

REPORT INFORMATION
  Report Type: Spontaneous
  Country: TR (occurrence: TR)
  Receive Date: 20131230
  Receipt Date: 20140311
  Transmission Date: 20141002
  Serious: Yes (Hospitalization)
  Sender: FDA-Public Use
  Company Number: PHHY2013TR150398

PATIENT
  Age: 69 Year
  Sex: Female

DRUGS (3)
  1. TASIGNA [Suspect]
     Indication: CHRONIC MYELOID LEUKAEMIA
     Dosage: 800 MG, UNK
     Dates: start: 20130125, end: 20130904
  2. TASIGNA [Suspect]
     Dosage: 800 MG, UNK
     Dates: start: 20130924, end: 20131003
  3. TASIGNA [Suspect]
     Dosage: 200 MG, DAILY
     Dates: start: 20131122, end: 20131128

REACTIONS (6)
  - Cholecystitis [Recovered/Resolved]
  - Abdominal pain [Recovered/Resolved]
  - Hepatic enzyme increased [Unknown]
  - Gallbladder oedema [Unknown]
  - Jaundice [Unknown]
  - Chromaturia [Unknown]
